FAERS Safety Report 24527809 (Version 1)
Quarter: 2024Q4

REPORT INFORMATION
  Report Type: Spontaneous
  Country: US (occurrence: US)
  Receive Date: 20241021
  Receipt Date: 20241021
  Transmission Date: 20250115
  Serious: No
  Sender: AMGEN
  Company Number: US-AMGEN-USASP2024206087

PATIENT

DRUGS (2)
  1. PREDNISONE [Suspect]
     Active Substance: PREDNISONE
     Indication: Duchenne muscular dystrophy
     Dosage: 1 MILLIGRAM/KILOGRAM, QD (30-DAY TAPER POST-INFUSION)
     Route: 065
  2. DELANDISTROGENE MOXEPARVOVEC [Concomitant]
     Active Substance: DELANDISTROGENE MOXEPARVOVEC
     Indication: Duchenne muscular dystrophy
     Dosage: UNK, 1.33X10,4 VG/KG
     Route: 065

REACTIONS (3)
  - Adverse event [Unknown]
  - Hepatic enzyme increased [Recovered/Resolved]
  - Vomiting [Recovered/Resolved]
